FAERS Safety Report 6245356-2 (Version None)
Quarter: 2009Q2

REPORT INFORMATION
  Report Type: 
  Country: None (occurrence: None)
  Receive Date: 20090625
  Receipt Date: 20090610
  Transmission Date: 20091009
  Serious: Yes (Hospitalization)
  Sender: FDA-Public Use
  Company Number: KR-PFIZER INC-2009229482

PATIENT
  Age: 55 Year

DRUGS (4)
  1. CAMPTOSAR [Suspect]
     Indication: GASTRIC CANCER
     Dosage: 300 MG, UNK
     Route: 042
     Dates: start: 20090507, end: 20090521
  2. CALCIUM LEVOFOLINATE [Concomitant]
     Indication: GASTRIC CANCER
     Dosage: 340 MG, UNK
     Route: 042
     Dates: start: 20090507, end: 20090521
  3. FLUOROURACIL [Concomitant]
     Indication: GASTRIC CANCER
     Dosage: 680 MG, UNK
     Route: 040
     Dates: start: 20090507, end: 20090521
  4. FLUOROURACIL [Concomitant]
     Dosage: 4000 MG, UNK
     Route: 042
     Dates: start: 20090507, end: 20090521

REACTIONS (4)
  - FEBRILE NEUTROPENIA [None]
  - HICCUPS [None]
  - HYPOPHAGIA [None]
  - ORAL CANDIDIASIS [None]
